FAERS Safety Report 4279023-1 (Version None)
Quarter: 2004Q1

REPORT INFORMATION
  Report Type: 
  Country: None (occurrence: None)
  Receive Date: 20040122
  Receipt Date: 20040108
  Transmission Date: 20041129
  Serious: No
  Sender: FDA-Public Use
  Company Number: 200410051BWH

PATIENT
  Age: 69 Year
  Sex: Male
  Weight: 86.1834 kg

DRUGS (2)
  1. LEVITRA [Suspect]
     Indication: ERECTILE DYSFUNCTION
     Dosage: 20 MG, ONCE
     Dates: start: 20031201
  2. TIMOLOL MALEATE [Concomitant]

REACTIONS (2)
  - INTRAOCULAR PRESSURE INCREASED [None]
  - MEDICATION ERROR [None]
